FAERS Safety Report 11324146 (Version 1)
Quarter: 2015Q3

REPORT INFORMATION
  Report Type: Report from Study
  Country: US (occurrence: US)
  Receive Date: 20150730
  Receipt Date: 20150730
  Transmission Date: 20151125
  Serious: Yes (Hospitalization)
  Sender: FDA-Public Use
  Company Number: US-ABBVIE-15K-163-1435353-00

PATIENT
  Age: 33 Year
  Sex: Female

DRUGS (1)
  1. HUMIRA [Suspect]
     Active Substance: ADALIMUMAB
     Indication: CROHN^S DISEASE
     Route: 058
     Dates: start: 20150716, end: 20150716

REACTIONS (3)
  - Pyrexia [Recovered/Resolved]
  - Chills [Recovered/Resolved]
  - Headache [Recovering/Resolving]

NARRATIVE: CASE EVENT DATE: 201507
